FAERS Safety Report 13353281 (Version 1)
Quarter: 2017Q1

REPORT INFORMATION
  Report Type: Spontaneous
  Country: BR (occurrence: BR)
  Receive Date: 20170321
  Receipt Date: 20170321
  Transmission Date: 20170429
  Serious: Yes (Other)
  Sender: FDA-Public Use
  Company Number: PHHY2017BR037046

PATIENT
  Age: 47 Year
  Sex: Male

DRUGS (7)
  1. ROYAL JELLY [Concomitant]
     Active Substance: ROYAL JELLY
     Indication: PRODUCT USED FOR UNKNOWN INDICATION
     Route: 065
  2. HONEY [Concomitant]
     Active Substance: HONEY
     Indication: PRODUCT USED FOR UNKNOWN INDICATION
     Route: 065
  3. LABIRIN [Concomitant]
     Active Substance: BETAHISTINE
     Indication: PRODUCT USED FOR UNKNOWN INDICATION
     Route: 065
  4. VITAMIN E [Suspect]
     Active Substance: .ALPHA.-TOCOPHEROL
     Indication: PRODUCT USED FOR UNKNOWN INDICATION
     Dosage: 1 DF, UNK
     Route: 048
     Dates: start: 20170308
  5. VITAMIN A [Concomitant]
     Active Substance: VITAMIN A
     Indication: PRODUCT USED FOR UNKNOWN INDICATION
     Route: 065
  6. ASCORBIC ACID. [Concomitant]
     Active Substance: ASCORBIC ACID
     Indication: PRODUCT USED FOR UNKNOWN INDICATION
     Route: 065
  7. GINKGO BILOBA [Concomitant]
     Active Substance: GINKGO
     Indication: PRODUCT USED FOR UNKNOWN INDICATION
     Route: 065

REACTIONS (8)
  - Agitation [Unknown]
  - Balance disorder [Unknown]
  - Bedridden [Unknown]
  - Feeling abnormal [Unknown]
  - Visual impairment [Unknown]
  - Tinnitus [Unknown]
  - Fatigue [Unknown]
  - Tremor [Unknown]

NARRATIVE: CASE EVENT DATE: 20170308
